FAERS Safety Report 24254441 (Version 1)
Quarter: 2024Q3

REPORT INFORMATION
  Report Type: Spontaneous
  Country: US (occurrence: None)
  Receive Date: 20240826
  Receipt Date: 20240826
  Transmission Date: 20241017
  Serious: Yes (Life-Threatening, Hospitalization)
  Sender: Public
  Company Number: None

PATIENT
  Age: 56 Year
  Sex: Female
  Weight: 98.55 kg

DRUGS (1)
  1. JARDIANCE [Suspect]
     Active Substance: EMPAGLIFLOZIN
     Indication: Type 2 diabetes mellitus
     Dosage: 25 MG DAILY ORAL
     Route: 048
     Dates: start: 20230724, end: 20240704

REACTIONS (8)
  - Syncope [None]
  - Unresponsive to stimuli [None]
  - Dehydration [None]
  - Euglycaemic diabetic ketoacidosis [None]
  - Drug monitoring procedure not performed [None]
  - Device failure [None]
  - Cystitis [None]
  - Cystitis klebsiella [None]

NARRATIVE: CASE EVENT DATE: 20240704
